FAERS Safety Report 8039712-X (Version None)
Quarter: 2012Q1

REPORT INFORMATION
  Report Type: 
  Country: None (occurrence: None)
  Receive Date: 20120111
  Receipt Date: 20111219
  Transmission Date: 20120608
  Serious: No
  Sender: FDA-Public Use
  Company Number: US-AMGEN-USASP2011052021

PATIENT
  Sex: Female
  Weight: 62.1 kg

DRUGS (21)
  1. IBUPROFEN [Concomitant]
  2. HYDROXYCHLOROQUINE SULFATE [Concomitant]
  3. METHOTREXATE [Concomitant]
     Indication: RHEUMATOID ARTHRITIS
     Dosage: 10 MG, QWK
     Route: 048
  4. CREON [Concomitant]
  5. THYROID TAB [Concomitant]
  6. VITAMIN E                          /00110501/ [Concomitant]
  7. OSSOPAN                            /00615501/ [Concomitant]
  8. LEUKOVORIN [Concomitant]
  9. VITRON C [Concomitant]
     Dosage: 1 UNK, UNK
  10. SERIPHOS [Concomitant]
     Dosage: 1 UNK
  11. VITAMIN D [Concomitant]
     Dosage: 1 UNK, UNK
  12. METHYL B12 [Concomitant]
     Dosage: 1 UNK, UNK
  13. CO-Q10-CHLORELLA [Concomitant]
     Dosage: 1 UNK, UNK
  14. ONCO CARBIDE [Concomitant]
     Dosage: 1 UNK, UNK
  15. PROBIOTICS [Concomitant]
  16. HUMIRA [Concomitant]
  17. ASACOL [Concomitant]
  18. ZEVALIN [Concomitant]
  19. ZYRTEC-D 12 HOUR [Concomitant]
     Dosage: 1 UNK, UNK
  20. ENBREL [Suspect]
     Indication: RHEUMATOID ARTHRITIS
     Dosage: 50 MG, 2 TIMES/WK
     Route: 058
     Dates: start: 20110818
  21. CARISOPRODOL [Concomitant]

REACTIONS (10)
  - FATIGUE [None]
  - INSOMNIA [None]
  - PRURITUS [None]
  - NAUSEA [None]
  - PAIN [None]
  - URTICARIA [None]
  - RHEUMATOID ARTHRITIS [None]
  - DIZZINESS [None]
  - ERYTHEMA [None]
  - GASTRITIS [None]
